FAERS Safety Report 9619720 (Version 2)
Quarter: 2013Q4

REPORT INFORMATION
  Report Type: Spontaneous
  Country: US (occurrence: US)
  Receive Date: 20131014
  Receipt Date: 20131023
  Transmission Date: 20140711
  Serious: No
  Sender: FDA-Public Use
  Company Number: US-BAYER-2013-124193

PATIENT
  Sex: Female

DRUGS (2)
  1. MIRENA [Suspect]
     Indication: CONTRACEPTION
     Dosage: 20 MCG/24HR, CONT
     Route: 015
     Dates: start: 20130718, end: 201310
  2. MIRENA [Suspect]
     Indication: MENORRHAGIA

REACTIONS (2)
  - Drug ineffective [None]
  - Device expulsion [Recovered/Resolved]
